FAERS Safety Report 13457357 (Version 1)
Quarter: 2017Q2

REPORT INFORMATION
  Report Type: Report from Study
  Country: US (occurrence: US)
  Receive Date: 20170419
  Receipt Date: 20170419
  Transmission Date: 20170830
  Serious: No
  Sender: FDA-Public Use
  Company Number: PHEH2017US005387

PATIENT
  Age: 44 Year
  Sex: Female

DRUGS (1)
  1. IMATINIB [Suspect]
     Active Substance: IMATINIB
     Indication: PRODUCT USED FOR UNKNOWN INDICATION
     Dosage: 400 MG, QD AT NIGHT
     Route: 065
     Dates: start: 20170127, end: 20170205

REACTIONS (7)
  - Rash [Not Recovered/Not Resolved]
  - Syncope [Unknown]
  - Wheezing [Unknown]
  - Swelling face [Unknown]
  - Pyrexia [Unknown]
  - Hypersensitivity [Unknown]
  - Chills [Unknown]

NARRATIVE: CASE EVENT DATE: 20170208
